FAERS Safety Report 16732469 (Version 1)
Quarter: 2019Q3

REPORT INFORMATION
  Report Type: Spontaneous
  Country: US (occurrence: US)
  Receive Date: 20190822
  Receipt Date: 20190822
  Transmission Date: 20191005
  Serious: Yes (Death, Other)
  Sender: FDA-Public Use
  Company Number: US-ALEXION PHARMACEUTICALS INC.-A201912575

PATIENT
  Age: 66 Year

DRUGS (1)
  1. SOLIRIS [Suspect]
     Active Substance: ECULIZUMAB
     Indication: ATYPICAL HAEMOLYTIC URAEMIC SYNDROME
     Dosage: 900 MG, QW
     Route: 065
     Dates: start: 20190812

REACTIONS (7)
  - Cardio-respiratory arrest [Fatal]
  - Bradycardia [Fatal]
  - Dialysis [Unknown]
  - Vomiting [Unknown]
  - Acidosis [Unknown]
  - Condition aggravated [Unknown]
  - Metabolic acidosis [Fatal]

NARRATIVE: CASE EVENT DATE: 20190812
